FAERS Safety Report 12597495 (Version 3)
Quarter: 2016Q4

REPORT INFORMATION
  Report Type: Spontaneous
  Country: IT (occurrence: IT)
  Receive Date: 20160726
  Receipt Date: 20161018
  Transmission Date: 20170207
  Serious: Yes (Hospitalization)
  Sender: FDA-Public Use
  Company Number: PHHY2016IT101270

PATIENT
  Age: 60 Year
  Sex: Female

DRUGS (3)
  1. LIORESAL [Concomitant]
     Active Substance: BACLOFEN
     Indication: MUSCLE SPASTICITY
     Dosage: 12.5 MG, UNK
     Route: 048
     Dates: start: 20100101, end: 20160620
  2. EXTAVIA [Suspect]
     Active Substance: INTERFERON BETA-1B
     Indication: MULTIPLE SCLEROSIS
     Dosage: 250 UG, QOD
     Route: 058
     Dates: start: 20120210, end: 20160620
  3. GARDENALE [Concomitant]
     Active Substance: PHENOBARBITAL
     Indication: PARTIAL SEIZURES
     Dosage: UNK
     Route: 065
     Dates: start: 20120301, end: 20160620

REACTIONS (2)
  - Cellulitis [Recovering/Resolving]
  - Myositis ossificans [Recovering/Resolving]

NARRATIVE: CASE EVENT DATE: 20160606
